FAERS Safety Report 5306849-5 (Version None)
Quarter: 2007Q2

REPORT INFORMATION
  Report Type: 
  Country: None (occurrence: None)
  Receive Date: 20070425
  Receipt Date: 20070412
  Transmission Date: 20071010
  Serious: Yes (Other)
  Sender: FDA-Public Use
  Company Number: PHBS2007US06917

PATIENT

DRUGS (6)
  1. IMIPRAMINE [Suspect]
     Dosage: MATERNAL DOSE: 80 MG/DAY
     Route: 064
  2. CLONAZEPAM [Suspect]
     Dosage: MATERNAL DOSE: 1 MG
     Route: 064
  3. RISPERDAL [Suspect]
     Dosage: MATERNAL DOSE: 12 MG
     Route: 064
  4. RISPERDAL [Suspect]
     Dosage: MATERNAL DOSE: 10 MG
     Route: 064
  5. RISPERDAL [Suspect]
     Dosage: MATERNAL DOSE: 8 MG
     Route: 064
  6. ALCOHOL [Suspect]

REACTIONS (4)
  - AGITATION NEONATAL [None]
  - DRUG EXPOSURE DURING PREGNANCY [None]
  - POOR SUCKING REFLEX [None]
  - SOMNOLENCE NEONATAL [None]
